FAERS Safety Report 24388327 (Version 1)
Quarter: 2024Q4

REPORT INFORMATION
  Report Type: Spontaneous
  Country: SE (occurrence: SE)
  Receive Date: 20241002
  Receipt Date: 20241002
  Transmission Date: 20250115
  Serious: Yes (Other)
  Sender: INFORLIFE
  Company Number: SE-PFIZER INC-2019497678

PATIENT
  Age: 68 Year
  Sex: Female

DRUGS (4)
  1. CHLOROQUINE [Suspect]
     Active Substance: CHLOROQUINE
     Indication: Collagen disorder
     Dosage: 250 MG, DAILY (MORE THAN FIVE YEARS)
  2. INDOMETHACIN [Suspect]
     Active Substance: INDOMETHACIN
     Indication: Rheumatic disorder
  3. CIPROFLOXACIN [Suspect]
     Active Substance: CIPROFLOXACIN
     Indication: Osteitis
  4. NAPROXEN [Suspect]
     Active Substance: NAPROXEN
     Indication: Collagen disorder

REACTIONS (2)
  - Polyneuropathy [Recovering/Resolving]
  - Drug interaction [Unknown]
